FAERS Safety Report 18933659 (Version 1)
Quarter: 2021Q1

REPORT INFORMATION
  Report Type: Spontaneous
  Country: US (occurrence: US)
  Receive Date: 20210224
  Receipt Date: 20210224
  Transmission Date: 20210420
  Serious: No
  Sender: FDA-Public Use
  Company Number: US-009507513-2102USA004939

PATIENT
  Age: 88 Year
  Sex: Female
  Weight: 46.71 kg

DRUGS (1)
  1. KEYTRUDA [Suspect]
     Active Substance: PEMBROLIZUMAB
     Indication: LUNG NEOPLASM MALIGNANT
     Dosage: UNK UNK, EVERY 3 WEEKS
     Route: 042
     Dates: start: 20180925

REACTIONS (3)
  - Decreased appetite [Unknown]
  - Hypersomnia [Unknown]
  - Therapeutic product effect decreased [Unknown]

NARRATIVE: CASE EVENT DATE: 202009
